FAERS Safety Report 23394715 (Version 1)
Quarter: 2024Q1

REPORT INFORMATION
  Report Type: Spontaneous
  Country: GB (occurrence: GB)
  Receive Date: 20240112
  Receipt Date: 20240112
  Transmission Date: 20240410
  Serious: Yes (Other)
  Sender: FDA-Public Use
  Company Number: GB-MHRA-EMIS-968-f8f6eba9-43ae-4bff-8035-9bea957f6785

PATIENT
  Age: 21 Year
  Sex: Female
  Weight: 76 kg

DRUGS (3)
  1. CITALOPRAM [Suspect]
     Active Substance: CITALOPRAM HYDROBROMIDE
     Indication: Mixed anxiety and depressive disorder
     Dosage: 1 DOSAGE FORM, ONCE A DAY
     Route: 065
     Dates: start: 20231222, end: 20231229
  2. SERTRALINE [Concomitant]
     Active Substance: SERTRALINE HYDROCHLORIDE
     Indication: Mixed anxiety and depressive disorder
     Dosage: 0.5 DOSAGE FORM, ONCE A DAY (FOR ONE WEEK THAN ONE TABLET DAILY)
     Route: 065
     Dates: start: 20231208
  3. VENLAFAXINE HYDROCHLORIDE [Concomitant]
     Active Substance: VENLAFAXINE HYDROCHLORIDE
     Indication: Product used for unknown indication
     Dosage: 1 DOSAGE FORM, ONCE A DAY
     Route: 065
     Dates: start: 20231229

REACTIONS (2)
  - Urticaria [Recovered/Resolved]
  - Lip swelling [Recovered/Resolved]
